FAERS Safety Report 6975702-3 (Version None)
Quarter: 2010Q3

REPORT INFORMATION
  Report Type: 
  Country: None (occurrence: None)
  Receive Date: 20100910
  Receipt Date: 20090422
  Transmission Date: 20110219
  Serious: No
  Sender: FDA-Public Use
  Company Number: US-WYE-H08765709

PATIENT
  Sex: Female
  Weight: 84.44 kg

DRUGS (6)
  1. PRISTIQ [Suspect]
     Indication: DEPRESSION
     Route: 048
     Dates: start: 20090101, end: 20090331
  2. ZOCOR [Concomitant]
  3. FISH OIL [Concomitant]
  4. VOLTAREN [Concomitant]
  5. PRILOSEC [Concomitant]
  6. MULTI-VITAMINS [Concomitant]

REACTIONS (7)
  - CRYING [None]
  - DIZZINESS [None]
  - DRUG EFFECT DECREASED [None]
  - EMOTIONAL DISTRESS [None]
  - HEADACHE [None]
  - INSOMNIA [None]
  - NAUSEA [None]
